FAERS Safety Report 11895478 (Version 1)
Quarter: 2016Q1

REPORT INFORMATION
  Report Type: Spontaneous
  Country: US (occurrence: US)
  Receive Date: 20160107
  Receipt Date: 20160107
  Transmission Date: 20160526
  Serious: No
  Sender: FDA-Public Use
  Company Number: US-TEVA-619967ACC

PATIENT
  Sex: Female

DRUGS (2)
  1. MIRENA [Suspect]
     Active Substance: LEVONORGESTREL
     Route: 065
  2. PARAGARD T 380A [Suspect]
     Active Substance: COPPER
     Indication: CONTRACEPTION
     Dates: start: 20090501, end: 201511

REACTIONS (10)
  - Hypoaesthesia [Unknown]
  - Back pain [Unknown]
  - Vomiting [Unknown]
  - Hair disorder [Unknown]
  - Pain [Unknown]
  - Weight increased [Unknown]
  - Adverse event [Unknown]
  - Thinking abnormal [Unknown]
  - Muscle spasms [Unknown]
  - Skin disorder [Unknown]
